FAERS Safety Report 10261469 (Version 1)
Quarter: 2014Q2

REPORT INFORMATION
  Report Type: Spontaneous
  Country: GB (occurrence: None)
  Receive Date: 20140623
  Receipt Date: 20140623
  Transmission Date: 20141212
  Serious: Yes (Other)
  Sender: FDA-Public Use
  Company Number: AUR-APL-2014-06509

PATIENT
  Age: 19 Year
  Sex: Male

DRUGS (1)
  1. RAMIPRIL (RAMIPRIL) UNKNOWN, UNKNOWN [Suspect]
     Indication: PRODUCT USED FOR UNKNOWN INDICATION
     Dates: start: 20140507

REACTIONS (1)
  - Muscle spasms [None]
